FAERS Safety Report 12579588 (Version 3)
Quarter: 2016Q3

REPORT INFORMATION
  Report Type: Spontaneous
  Country: JP (occurrence: JP)
  Receive Date: 20160721
  Receipt Date: 20160815
  Transmission Date: 20161109
  Serious: Yes (Life-Threatening, Other)
  Sender: FDA-Public Use
  Company Number: JP-PFIZER INC-2016348893

PATIENT
  Age: 78 Year
  Sex: Female

DRUGS (3)
  1. LEVETIRACETAM. [Concomitant]
     Active Substance: LEVETIRACETAM
     Indication: CLONIC CONVULSION
     Dosage: UNK
     Route: 065
  2. FOSPHENYTOIN SODIUM. [Suspect]
     Active Substance: FOSPHENYTOIN SODIUM
     Indication: CLONIC CONVULSION
     Dosage: UNK
     Route: 042
  3. VAPROIC ACID [Concomitant]
     Indication: CLONIC CONVULSION
     Dosage: UNK
     Route: 065

REACTIONS (3)
  - Cardio-respiratory arrest [Unknown]
  - Pneumonia [Unknown]
  - Drug ineffective [Unknown]
